FAERS Safety Report 6259373-X (Version None)
Quarter: 2009Q3

REPORT INFORMATION
  Report Type: 
  Country: None (occurrence: None)
  Receive Date: 20090702
  Receipt Date: 20090629
  Transmission Date: 20100115
  Serious: No
  Sender: FDA-Public Use
  Company Number: A0779087A

PATIENT
  Age: 64 Year
  Sex: Female

DRUGS (2)
  1. SODIUM FLUORIDE + POTASSIUM NITRATE TOOTHPASTE (SODIUM FLUORIDE + POTA [Suspect]
     Indication: SENSITIVITY OF TEETH
     Dosage: DENTAL
     Route: 004
  2. SODIUM FLUORIDE + POTASSIUM NITRATE TOOTHPASTE (SODIUM FLUORIDE + POTA [Suspect]
     Indication: SENSITIVITY OF TEETH
     Dosage: DENTAL
     Route: 004

REACTIONS (2)
  - TOOTH DISORDER [None]
  - TOOTH LOSS [None]
